FAERS Safety Report 12726657 (Version 1)
Quarter: 2016Q3

REPORT INFORMATION
  Report Type: Spontaneous
  Country: GB (occurrence: GB)
  Receive Date: 20160908
  Receipt Date: 20160908
  Transmission Date: 20161109
  Serious: Yes (Hospitalization)
  Sender: FDA-Public Use
  Company Number: GB-TEVA-688594ACC

PATIENT
  Age: 73 Year
  Sex: Female
  Weight: 61.68 kg

DRUGS (1)
  1. NAPROXEN. [Suspect]
     Active Substance: NAPROXEN
     Indication: OSTEOARTHRITIS
     Dates: start: 20160719, end: 20160719

REACTIONS (4)
  - Abdominal pain upper [Unknown]
  - Arthralgia [Unknown]
  - Rash pruritic [Unknown]
  - Wheezing [Unknown]

NARRATIVE: CASE EVENT DATE: 20160719
